FAERS Safety Report 18659608 (Version 1)
Quarter: 2020Q4

REPORT INFORMATION
  Report Type: Spontaneous
  Country: HR (occurrence: HR)
  Receive Date: 20201224
  Receipt Date: 20201224
  Transmission Date: 20210114
  Serious: Yes (Life-Threatening, Hospitalization)
  Sender: FDA-Public Use
  Company Number: HR-ROCHE-2737232

PATIENT
  Age: 67 Year
  Sex: Male

DRUGS (2)
  1. ZELBORAF [Suspect]
     Active Substance: VEMURAFENIB
     Indication: PRODUCT USED FOR UNKNOWN INDICATION
     Route: 048
     Dates: start: 20201026
  2. COTELLIC [Concomitant]
     Active Substance: COBIMETINIB
     Dosage: UNK
     Route: 048
     Dates: start: 20201126

REACTIONS (4)
  - Hepatitis [Recovered/Resolved]
  - Nephritis [Recovered/Resolved]
  - Rash [Recovered/Resolved]
  - Pancytopenia [Recovered/Resolved]

NARRATIVE: CASE EVENT DATE: 20201106
